FAERS Safety Report 5453861-1 (Version None)
Quarter: 2007Q3

REPORT INFORMATION
  Report Type: 
  Country: None (occurrence: None)
  Receive Date: 20070917
  Receipt Date: 20070912
  Transmission Date: 20080115
  Serious: Yes (Death, Hospitalization)
  Sender: FDA-Public Use
  Company Number: B0484032A

PATIENT
  Age: 75 Year
  Sex: Male

DRUGS (2)
  1. AVANDIA [Suspect]
     Dosage: 2MG TWICE PER DAY
     Route: 048
     Dates: start: 20070101
  2. STAGID [Concomitant]
     Route: 048

REACTIONS (9)
  - ANOREXIA [None]
  - CARDIAC ARREST [None]
  - CHEST PAIN [None]
  - COMA [None]
  - DYSPNOEA [None]
  - INFLAMMATION [None]
  - MALAISE [None]
  - NAUSEA [None]
  - VOMITING [None]
